FAERS Safety Report 16897245 (Version 2)
Quarter: 2019Q4

REPORT INFORMATION
  Report Type: Report from Study
  Country: US (occurrence: US)
  Receive Date: 20191009
  Receipt Date: 20191021
  Transmission Date: 20200122
  Serious: Yes (Hospitalization)
  Sender: FDA-Public Use
  Company Number: US-BIOGEN-2019BI00790145

PATIENT
  Age: 50 Year
  Sex: Female

DRUGS (1)
  1. AVONEX [Suspect]
     Active Substance: INTERFERON BETA-1A
     Indication: MULTIPLE SCLEROSIS
     Route: 030
     Dates: start: 20011011, end: 20170706

REACTIONS (6)
  - Loss of consciousness [Unknown]
  - Fatigue [Unknown]
  - Fall [Recovered/Resolved]
  - Syncope [Unknown]
  - Multiple sclerosis relapse [Unknown]
  - Balance disorder [Unknown]

NARRATIVE: CASE EVENT DATE: 201704
